FAERS Safety Report 8994504 (Version 1)
Quarter: 2012Q4

REPORT INFORMATION
  Report Type: Spontaneous
  Country: US (occurrence: None)
  Receive Date: 20121228
  Receipt Date: 20121228
  Transmission Date: 20130627
  Serious: Yes (Hospitalization)
  Sender: FDA-Public Use
  Company Number: None

PATIENT
  Sex: Male
  Weight: 106.8 kg

DRUGS (1)
  1. ARMODAFINIL [Suspect]
     Indication: FATIGUE MANAGEMENT
     Dosage: Armodafinil 150mg or Placebo every AM oral
     Route: 048
     Dates: start: 20121009

REACTIONS (7)
  - Deep vein thrombosis [None]
  - Pulmonary embolism [None]
  - Oral candidiasis [None]
  - Vision blurred [None]
  - Fatigue [None]
  - Oedema peripheral [None]
  - Dyspnoea [None]
